FAERS Safety Report 9988305 (Version 2)
Quarter: 2014Q1

REPORT INFORMATION
  Report Type: Report from Study
  Country: BE (occurrence: BE)
  Receive Date: 20140310
  Receipt Date: 20140313
  Transmission Date: 20141002
  Serious: Yes (Hospitalization)
  Sender: FDA-Public Use
  Company Number: BE-AMGEN-BELCT2014016333

PATIENT
  Age: 66 Year
  Sex: Female
  Weight: 62 kg

DRUGS (3)
  1. ETANERCEPT [Suspect]
     Indication: RHEUMATOID ARTHRITIS
     Dosage: 25 MG, 2X/WEEK
     Route: 058
     Dates: start: 20030215, end: 20030219
  2. MEDROL                             /00049601/ [Concomitant]
     Dosage: UNK
     Route: 048
     Dates: start: 20030103
  3. LEDERTREXATE                       /00113801/ [Concomitant]
     Dosage: 15 MG, WEEKLY
     Route: 030
     Dates: start: 19991110

REACTIONS (2)
  - Vertigo [Recovered/Resolved]
  - Hip fracture [Unknown]
